FAERS Safety Report 8514798-4 (Version None)
Quarter: 2012Q3

REPORT INFORMATION
  Report Type: 
  Country: None (occurrence: None)
  Receive Date: 20120711
  Receipt Date: 20120711
  Transmission Date: 20120928
  Serious: No
  Sender: FDA-Public Use
  Company Number: None

PATIENT
  Age: 30 Year
  Sex: Female
  Weight: 102.5129 kg

DRUGS (1)
  1. LYRICA [Suspect]
     Indication: NEURALGIA
     Dosage: 25MG 2 TIMES DAILY PO
     Route: 048
     Dates: start: 20120613, end: 20120709

REACTIONS (1)
  - MENSTRUATION DELAYED [None]
